FAERS Safety Report 10178624 (Version 1)
Quarter: 2014Q2

REPORT INFORMATION
  Report Type: Spontaneous
  Country: FR (occurrence: FR)
  Receive Date: 20140519
  Receipt Date: 20140519
  Transmission Date: 20141212
  Serious: Yes (Life-Threatening, Hospitalization)
  Sender: FDA-Public Use
  Company Number: FR-009507513-1405FRA005571

PATIENT
  Age: 59 Year
  Sex: Female
  Weight: 54 kg

DRUGS (3)
  1. VIRAFERONPEG [Suspect]
     Indication: HEPATITIS C
     Dosage: 100 MICROGRAM, QW
     Route: 058
     Dates: start: 201301, end: 20131023
  2. RIBAVIRIN [Suspect]
     Indication: HEPATITIS C
     Dosage: 1 G, QD
     Route: 048
     Dates: start: 201301, end: 20131025
  3. TELAPREVIR [Concomitant]
     Dosage: 1125 MG, UNK
     Route: 048

REACTIONS (1)
  - Acquired haemophilia [Recovering/Resolving]
